FAERS Safety Report 6376246-2 (Version None)
Quarter: 2009Q3

REPORT INFORMATION
  Report Type: 
  Country: None (occurrence: None)
  Receive Date: 20090925
  Receipt Date: 20090921
  Transmission Date: 20100115
  Serious: Yes (Hospitalization)
  Sender: FDA-Public Use
  Company Number: US-BIOGENIDEC-2009BI027974

PATIENT
  Sex: Female

DRUGS (1)
  1. TYSABRI [Suspect]
     Indication: MULTIPLE SCLEROSIS
     Route: 042
     Dates: start: 20090515, end: 20090615

REACTIONS (4)
  - CALCINOSIS [None]
  - GAIT DISTURBANCE [None]
  - INTERVERTEBRAL DISC PROTRUSION [None]
  - VISION BLURRED [None]
